FAERS Safety Report 5796697-4 (Version None)
Quarter: 2008Q2

REPORT INFORMATION
  Report Type: 
  Country: None (occurrence: None)
  Receive Date: 20080630
  Receipt Date: 20080630
  Transmission Date: 20081010
  Serious: Yes (Other)
  Sender: FDA-Public Use
  Company Number: None

PATIENT
  Age: 43 Year
  Sex: Female
  Weight: 66.2252 kg

DRUGS (3)
  1. MIRENA [Suspect]
     Indication: HAEMORRHAGE
     Dates: start: 20080527, end: 20080616
  2. MIRENA [Suspect]
     Indication: MUSCLE SPASMS
     Dates: start: 20080527, end: 20080616
  3. MIRENA [Suspect]
     Indication: THROMBOSIS
     Dates: start: 20080527, end: 20080616

REACTIONS (17)
  - ABDOMINAL DISTENSION [None]
  - ABDOMINAL PAIN [None]
  - ACNE [None]
  - BREAST ENLARGEMENT [None]
  - BREAST TENDERNESS [None]
  - CLUMSINESS [None]
  - FEELING ABNORMAL [None]
  - HAEMORRHAGE [None]
  - IUD MIGRATION [None]
  - OEDEMA PERIPHERAL [None]
  - OVARIAN CYST [None]
  - PELVIC PAIN [None]
  - PROCEDURAL PAIN [None]
  - PYREXIA [None]
  - THROMBOSIS [None]
  - UTERINE ENLARGEMENT [None]
  - WEIGHT INCREASED [None]
